FAERS Safety Report 11814342 (Version 2)
Quarter: 2016Q1

REPORT INFORMATION
  Report Type: Spontaneous
  Country: US (occurrence: US)
  Receive Date: 20151209
  Receipt Date: 20160131
  Transmission Date: 20160525
  Serious: Yes (Death, Hospitalization, Other)
  Sender: FDA-Public Use
  Company Number: PHEH2015US025123

PATIENT
  Sex: Female

DRUGS (2)
  1. AFINITOR [Suspect]
     Active Substance: EVEROLIMUS
     Indication: BREAST CANCER
     Dosage: DAILY
     Route: 048
     Dates: start: 20151109, end: 20151109
  2. AROMASIN [Suspect]
     Active Substance: EXEMESTANE
     Indication: BREAST CANCER
     Dosage: UNK
     Route: 065
     Dates: start: 20151101

REACTIONS (21)
  - Dyspnoea [Unknown]
  - Metastases to liver [Unknown]
  - Fatigue [Unknown]
  - Metastases to central nervous system [Unknown]
  - Platelet count decreased [Unknown]
  - Malaise [Unknown]
  - Malignant neoplasm progression [Fatal]
  - Influenza like illness [Unknown]
  - Pyrexia [Unknown]
  - Bone marrow infiltration [Unknown]
  - Diarrhoea [Unknown]
  - Thrombocytopenia [Unknown]
  - Weight decreased [Unknown]
  - Anaemia [Unknown]
  - Nausea [Unknown]
  - Metastases to lung [Unknown]
  - Gait disturbance [Unknown]
  - Leukopenia [Unknown]
  - Metastases to bone marrow [Unknown]
  - Epistaxis [Unknown]
  - Headache [Unknown]
